FAERS Safety Report 14176131 (Version 2)
Quarter: 2017Q4

REPORT INFORMATION
  Report Type: Spontaneous
  Country: US (occurrence: US)
  Receive Date: 20171109
  Receipt Date: 20171227
  Transmission Date: 20180321
  Serious: Yes (Hospitalization)
  Sender: FDA-Public Use
  Company Number: US-ACTELION-A-NJ2017-162029

PATIENT
  Age: 39 Year
  Sex: Female

DRUGS (2)
  1. OPSUMIT [Suspect]
     Active Substance: MACITENTAN
     Indication: PULMONARY ARTERIAL HYPERTENSION
     Dosage: 10 MG, QD
     Route: 048
     Dates: start: 20170815
  2. REMODULIN [Concomitant]
     Active Substance: TREPROSTINIL
     Dosage: 90 NG/KG, PER MIN
     Route: 042
     Dates: start: 20161129

REACTIONS (1)
  - Sickle cell anaemia [Recovered/Resolved]

NARRATIVE: CASE EVENT DATE: 20171019
